FAERS Safety Report 18811184 (Version 1)
Quarter: 2021Q1

REPORT INFORMATION
  Report Type: Spontaneous
  Country: US (occurrence: US)
  Receive Date: 20210129
  Receipt Date: 20210129
  Transmission Date: 20210419
  Serious: No
  Sender: FDA-Public Use
  Company Number: US-BAUSCH-BL-2020-039193

PATIENT
  Age: 41 Year
  Sex: Female

DRUGS (1)
  1. RETIN?A MICRO [Suspect]
     Active Substance: TRETINOIN
     Indication: ACNE
     Dosage: (50 GRAM PUMP) AS NEEDED
     Route: 061
     Dates: start: 202011, end: 202012

REACTIONS (3)
  - Therapy interrupted [Unknown]
  - Product container issue [Unknown]
  - No adverse event [Unknown]

NARRATIVE: CASE EVENT DATE: 202012
